FAERS Safety Report 7194345-2 (Version None)
Quarter: 2010Q4

REPORT INFORMATION
  Report Type: 
  Country: None (occurrence: None)
  Receive Date: 20101223
  Receipt Date: 20101213
  Transmission Date: 20110411
  Serious: No
  Sender: FDA-Public Use
  Company Number: DE-ELI_LILLY_AND_COMPANY-DE201012002915

PATIENT
  Age: 34 Year
  Sex: Female

DRUGS (3)
  1. CYMBALTA [Suspect]
     Indication: DEPRESSION
     Dosage: 60 MG, DAILY (1/D)
     Route: 048
     Dates: start: 20091201, end: 20101117
  2. NOVALGIN [Concomitant]
  3. IBUPROFEN [Concomitant]

REACTIONS (7)
  - ABNORMAL DREAMS [None]
  - ASPARTATE AMINOTRANSFERASE INCREASED [None]
  - DRUG WITHDRAWAL SYNDROME [None]
  - HEPATIC ENZYME INCREASED [None]
  - INSOMNIA [None]
  - IRRITABILITY [None]
  - SENSORY DISTURBANCE [None]
